FAERS Safety Report 8450240-X (Version None)
Quarter: 2012Q2

REPORT INFORMATION
  Report Type: 
  Country: None (occurrence: None)
  Receive Date: 20120613
  Receipt Date: 20120604
  Transmission Date: 20120825
  Serious: Yes (Other)
  Sender: FDA-Public Use
  Company Number: GB-GDP-12413985

PATIENT
  Age: 75 Year
  Sex: Male
  Weight: 75 kg

DRUGS (10)
  1. DOXYCYCLINE [Suspect]
     Indication: PRODUCT USED FOR UNKNOWN INDICATION
     Dates: start: 20120516
  2. SALMETEROL [Concomitant]
  3. PREDNISOLONE [Concomitant]
  4. TAMSULOSIN HYDROCHLORIDE [Concomitant]
  5. ZOLADEX /00732102/ [Concomitant]
  6. BECLOMETHASONE DIPROPIONATE [Concomitant]
  7. TIOTROPIUM BROMIDE [Concomitant]
  8. OMEPRAZOLE [Concomitant]
  9. FERROUS FUMARATE [Concomitant]
  10. VENTOLIN [Concomitant]

REACTIONS (3)
  - PARAESTHESIA [None]
  - PHOTODERMATOSIS [None]
  - RASH [None]
